FAERS Safety Report 18378128 (Version 1)
Quarter: 2020Q4

REPORT INFORMATION
  Report Type: Report from Study
  Country: CA (occurrence: CA)
  Receive Date: 20201013
  Receipt Date: 20201013
  Transmission Date: 20210114
  Serious: Yes (Other)
  Sender: FDA-Public Use
  Company Number: CA-JNJFOC-20200929184

PATIENT
  Age: 70 Year
  Sex: Male

DRUGS (1)
  1. SIMPONI [Suspect]
     Active Substance: GOLIMUMAB
     Indication: RHEUMATOID ARTHRITIS
     Route: 058
     Dates: start: 20120704

REACTIONS (3)
  - Pain in extremity [Not Recovered/Not Resolved]
  - Skin laceration [Not Recovered/Not Resolved]
  - Wound infection [Unknown]

NARRATIVE: CASE EVENT DATE: 20200910
